FAERS Safety Report 5307016-1 (Version None)
Quarter: 2007Q2

REPORT INFORMATION
  Report Type: 
  Country: None (occurrence: None)
  Receive Date: 20070419
  Receipt Date: 20070405
  Transmission Date: 20071010
  Serious: Yes (Hospitalization)
  Sender: FDA-Public Use
  Company Number: 2007-155720-NL

PATIENT
  Age: 43 Year
  Sex: Female

DRUGS (3)
  1. FOLITROPIN BETA [Suspect]
     Dosage: DF
  2. MENOTROPINS [Suspect]
     Indication: OVULATION INDUCTION
     Dosage: DF
  3. CLOMIPHENE CITRATE [Suspect]
     Indication: OVULATION INDUCTION
     Dosage: DF

REACTIONS (3)
  - ABORTION INDUCED [None]
  - CONJOINED TWINS [None]
  - DRUG EXPOSURE DURING PREGNANCY [None]
